FAERS Safety Report 7974684-5 (Version None)
Quarter: 2011Q4

REPORT INFORMATION
  Report Type: 
  Country: None (occurrence: None)
  Receive Date: 20111213
  Receipt Date: 20111207
  Transmission Date: 20120403
  Serious: Yes (Other)
  Sender: FDA-Public Use
  Company Number: PHHO2011US020648

PATIENT
  Sex: Female
  Weight: 59.6 kg

DRUGS (2)
  1. LAPATINIB [Suspect]
     Indication: NEOPLASM
     Dosage: 18750 MG, UNK
     Dates: start: 20090108, end: 20090122
  2. AFINITOR [Suspect]
     Indication: NEOPLASM
     Dosage: 40 MG, UNK
     Dates: start: 20090108, end: 20090122

REACTIONS (4)
  - HYPERGLYCAEMIA [None]
  - STOMATITIS [None]
  - RASH MACULO-PAPULAR [None]
  - MUSCULAR WEAKNESS [None]
